FAERS Safety Report 9026711 (Version 2)
Quarter: 2013Q1

REPORT INFORMATION
  Report Type: Spontaneous
  Country: US (occurrence: US)
  Receive Date: 20130123
  Receipt Date: 20130321
  Transmission Date: 20140127
  Serious: Yes (Other)
  Sender: FDA-Public Use
  Company Number: US-ASTRAZENECA-2013SE03842

PATIENT
  Age: 74 Year
  Sex: Female
  Weight: 57.2 kg

DRUGS (10)
  1. SYMBICORT [Suspect]
     Indication: ASTHMA
     Dosage: 2 PUFFS, TWO TIMES A DAY
     Route: 055
     Dates: start: 201110
  2. GABAPENTIN [Concomitant]
     Indication: POST HERPETIC NEURALGIA
     Route: 048
     Dates: start: 201210
  3. LEVOTHYROXINE [Concomitant]
     Indication: THYROID DISORDER
     Route: 048
  4. VITAMIN A [Concomitant]
     Dosage: 8000 UNIT BY MOUTH DAILY
     Route: 048
  5. MULTIVITAMIN [Concomitant]
     Route: 048
  6. VITAMIN E [Concomitant]
     Dosage: 1000 UNIT CAPSULE BY MOUTH DAILY
     Route: 048
  7. GLUCOSAM-CHONDRP-HERB 149-HYAL [Concomitant]
     Route: 048
  8. PREDNISONE [Concomitant]
     Dosage: THREE DAILY FOR THRE DAYS, TWO DAILY FOR THREE DAYS,ONE DAILY FOR THREE DAYS, 1/2 DAILY FOR FOUR DAY
  9. FAMCICLOVIR [Concomitant]
     Route: 048
  10. VICODIN ES [Concomitant]
     Dosage: 7.5 750 MG TABLET BY MOUTH EVVERY FOUR HOURS AS NEEDED FOR PAIN
     Route: 048

REACTIONS (5)
  - Post herpetic neuralgia [Not Recovered/Not Resolved]
  - Herpes zoster [Recovering/Resolving]
  - Pain [Unknown]
  - Rash [Unknown]
  - Pruritus [Unknown]
